FAERS Safety Report 5702817-X (Version None)
Quarter: 2008Q2

REPORT INFORMATION
  Report Type: 
  Country: None (occurrence: None)
  Receive Date: 20080411
  Receipt Date: 20080403
  Transmission Date: 20081010
  Serious: Yes (Hospitalization, Other)
  Sender: FDA-Public Use
  Company Number: US-ELI_LILLY_AND_COMPANY-US200804001235

PATIENT
  Sex: Male
  Weight: 117.1 kg

DRUGS (12)
  1. HUMALOG [Suspect]
     Dosage: 6 U, AFTER BREAKFAST
     Route: 058
     Dates: start: 20010606
  2. HUMALOG [Suspect]
     Dosage: 14 U, AFTER LUNCH
     Route: 058
     Dates: start: 20010606
  3. HUMALOG [Suspect]
     Dosage: 16 U, AFTER DINNER
     Route: 058
     Dates: start: 20010606
  4. LANTUS [Concomitant]
     Dosage: 36 U, EACH EVENING
     Route: 058
     Dates: start: 20060606
  5. SIMVASTATIN [Concomitant]
     Route: 048
     Dates: start: 20021002
  6. ACETYLSALICYLIC ACID SRT [Concomitant]
     Route: 048
     Dates: start: 19920101
  7. HYDROCHLOROTHIAZIDE [Concomitant]
     Route: 048
     Dates: start: 20020101
  8. ACCUPRIL [Concomitant]
     Route: 048
     Dates: start: 20020101
  9. PLAVIX [Concomitant]
     Route: 048
     Dates: start: 20040327
  10. AMLODIPINE BESYLATE [Concomitant]
     Route: 048
     Dates: start: 20040430
  11. CLONIDINE HCL [Concomitant]
     Route: 048
     Dates: start: 20040430
  12. MINOXIDIL [Concomitant]
     Route: 048
     Dates: start: 20040827

REACTIONS (5)
  - CEREBROVASCULAR ACCIDENT [None]
  - HYPOGLYCAEMIA [None]
  - HYPOXIA [None]
  - LUNG INFILTRATION [None]
  - PULMONARY HILAR ENLARGEMENT [None]
